FAERS Safety Report 15856975 (Version 1)
Quarter: 2019Q1

REPORT INFORMATION
  Report Type: Spontaneous
  Country: US (occurrence: US)
  Receive Date: 20190122
  Receipt Date: 20190122
  Transmission Date: 20190417
  Serious: Yes (Death)
  Sender: FDA-Public Use
  Company Number: None

PATIENT
  Age: 64 Year
  Sex: Female
  Weight: 55.2 kg

DRUGS (8)
  1. DOCUSATE 10MG BID [Concomitant]
     Dates: start: 20181217, end: 20181223
  2. VORICONAZOLE. [Suspect]
     Active Substance: VORICONAZOLE
     Indication: BRONCHOPULMONARY ASPERGILLOSIS
     Route: 042
     Dates: start: 20181219, end: 20181224
  3. AMIODARONE [Concomitant]
     Active Substance: AMIODARONE
     Dates: start: 20181218, end: 20181224
  4. GANCICLOVIR. [Concomitant]
     Active Substance: GANCICLOVIR
     Dates: start: 20181219, end: 20181224
  5. ALBUTEROL. [Concomitant]
     Active Substance: ALBUTEROL
     Dates: start: 20181217, end: 20181224
  6. HYDROCORTISONE 25MG IV [Concomitant]
     Dates: start: 20181218, end: 20181221
  7. MEROPENEM 500MG Q6HRS [Concomitant]
     Dates: start: 20181215, end: 20181223
  8. ASPIRIN 81MG [Concomitant]
     Active Substance: ASPIRIN
     Dates: start: 20181218, end: 20181224

REACTIONS (5)
  - Acidosis [None]
  - Hyperkalaemia [None]
  - Hepatic failure [None]
  - Cardio-respiratory arrest [None]
  - Pulseless electrical activity [None]

NARRATIVE: CASE EVENT DATE: 20181224
